FAERS Safety Report 21463720 (Version 2)
Quarter: 2023Q2

REPORT INFORMATION
  Report Type: Spontaneous
  Country: US (occurrence: US)
  Receive Date: 20221017
  Receipt Date: 20230524
  Transmission Date: 20230721
  Serious: No
  Sender: FDA-Public Use
  Company Number: US-APOTEX-2022AP011408

PATIENT
  Sex: Female

DRUGS (1)
  1. OFLOXACIN [Suspect]
     Active Substance: OFLOXACIN
     Indication: Postoperative care
     Dosage: 4 GTT DROPS, 1 DROP ON THE RIGHT EYE 4 TIMES A DAY
     Route: 047

REACTIONS (4)
  - Wrong technique in product usage process [Unknown]
  - Product packaging difficult to open [Recovered/Resolved]
  - Product leakage [Recovered/Resolved]
  - No adverse event [Unknown]
